FAERS Safety Report 11170778 (Version 1)
Quarter: 2015Q2

REPORT INFORMATION
  Report Type: Spontaneous
  Country: US (occurrence: None)
  Receive Date: 20150605
  Receipt Date: 20150605
  Transmission Date: 20150821
  Serious: Yes (Disabling, Other)
  Sender: FDA-Public Use
  Company Number: None

PATIENT
  Age: 47 Year
  Sex: Male
  Weight: 104.33 kg

DRUGS (9)
  1. BACK BRACE [Concomitant]
  2. METROPOLOL/CLONIDINE [Concomitant]
  3. PROMETHAZINE [Concomitant]
     Active Substance: PROMETHAZINE\PROMETHAZINE HYDROCHLORIDE
  4. ADVIL [Concomitant]
     Active Substance: IBUPROFEN
  5. TUMS [Concomitant]
     Active Substance: CALCIUM CARBONATE
  6. SENNA [Concomitant]
     Active Substance: SENNA LEAF\SENNOSIDES\SENNOSIDES A AND B
  7. OMEPERZOLE [Concomitant]
  8. DULCOLAX [Concomitant]
     Active Substance: BISACODYL OR DOCUSATE SODIUM
  9. OXYCODONE HYDROCHLORIDE IR [Suspect]
     Active Substance: OXYCODONE HYDROCHLORIDE
     Indication: PAIN
     Dosage: 1 PILL 5X/DAY AS NEEDED ?5X ?TAKEN BY MOUTH?THERAPY?7 DAYS/PREVIOUSLY 2 MONTHS
     Route: 048

REACTIONS (8)
  - Headache [None]
  - Abdominal pain [None]
  - Somnolence [None]
  - Constipation [None]
  - Alveolar osteitis [None]
  - Feeling abnormal [None]
  - Product substitution issue [None]
  - Inadequate analgesia [None]

NARRATIVE: CASE EVENT DATE: 20150604
